FAERS Safety Report 5283491-6 (Version None)
Quarter: 2007Q1

REPORT INFORMATION
  Report Type: 
  Country: None (occurrence: None)
  Receive Date: 20061226
  Receipt Date: 20060929
  Transmission Date: 20070707
  Serious: No
  Sender: FDA-Public Use
  Company Number: 2006PV022248

PATIENT
  Age: 58 Year
  Sex: Female

DRUGS (4)
  1. SYMLIN [Suspect]
     Indication: DRUG USE FOR UNKNOWN INDICATION
     Dosage: 60 MCG;TID;SC
     Route: 058
     Dates: start: 20060918
  2. SYMLIN [Suspect]
  3. LANTUS [Concomitant]
  4. NOVOLOG [Concomitant]

REACTIONS (2)
  - INJECTION SITE BRUISING [None]
  - INJECTION SITE PAIN [None]
